FAERS Safety Report 15875991 (Version 2)
Quarter: 2019Q1

REPORT INFORMATION
  Report Type: Report from Study
  Country: CO (occurrence: CO)
  Receive Date: 20190126
  Receipt Date: 20190211
  Transmission Date: 20190417
  Serious: Yes (Life-Threatening)
  Sender: FDA-Public Use
  Company Number: PHHY2018CO158334

PATIENT
  Age: 56 Year
  Sex: Female
  Weight: 46 kg

DRUGS (7)
  1. TYKERB [Suspect]
     Active Substance: LAPATINIB DITOSYLATE
     Dosage: 1000 MG, QD (4 TABLETS)
     Route: 048
  2. TYKERB [Suspect]
     Active Substance: LAPATINIB DITOSYLATE
     Dosage: 1250 MG, QD
     Route: 048
     Dates: start: 201812, end: 201901
  3. PREDNISOLONE. [Concomitant]
     Active Substance: PREDNISOLONE
     Indication: INFLAMMATION
     Dosage: 5 MG, Q12H
     Route: 048
  4. TRASTUZUMAB. [Suspect]
     Active Substance: TRASTUZUMAB
     Indication: PRODUCT USED FOR UNKNOWN INDICATION
     Route: 065
  5. OMEPRAZOLE. [Concomitant]
     Active Substance: OMEPRAZOLE
     Indication: PRODUCT USED FOR UNKNOWN INDICATION
     Route: 048
  6. TYKERB [Suspect]
     Active Substance: LAPATINIB DITOSYLATE
     Indication: BREAST CANCER METASTATIC
     Dosage: 1250 MG, QD (5 TABLETS DAILY)
     Route: 048
     Dates: start: 20180901
  7. TRAMADOL. [Concomitant]
     Active Substance: TRAMADOL
     Indication: PAIN
     Dosage: 10 DRP, PRN (WHEN SHE REFERS THAT SHE HAS PAIN)
     Route: 048

REACTIONS (9)
  - Decreased appetite [Unknown]
  - Apparent death [Unknown]
  - Dysphagia [Recovering/Resolving]
  - Weight loss poor [Recovering/Resolving]
  - Diarrhoea [Unknown]
  - Food refusal [Recovering/Resolving]
  - Vomiting [Recovering/Resolving]
  - Nausea [Unknown]
  - Feeling of despair [Recovering/Resolving]

NARRATIVE: CASE EVENT DATE: 201901
